FAERS Safety Report 9975788 (Version 1)
Quarter: 2014Q1

REPORT INFORMATION
  Report Type: Report from Study
  Country: US (occurrence: US)
  Receive Date: 20140306
  Receipt Date: 20140306
  Transmission Date: 20141002
  Serious: No
  Sender: FDA-Public Use
  Company Number: US-ABBVIE-13P-163-1160438-00

PATIENT
  Age: 29 Year
  Sex: Female

DRUGS (12)
  1. HUMIRA [Suspect]
     Indication: RHEUMATOID ARTHRITIS
     Dates: start: 20130718, end: 20130909
  2. FENOFIBRATE [Suspect]
     Indication: BLOOD CHOLESTEROL INCREASED
  3. CRESTOR [Suspect]
     Indication: BLOOD CHOLESTEROL INCREASED
  4. CYCLOBENZAPRINE [Concomitant]
     Indication: MUSCLE SPASMS
  5. TRAZODONE [Concomitant]
     Indication: INSOMNIA
  6. OMEPRAZOLE [Concomitant]
     Indication: GASTRIC DISORDER
  7. HYDROCODONE [Concomitant]
     Indication: PAIN
     Dosage: 5/500MG, 3 A DAY, AS NEEDED
  8. CLARITIN [Concomitant]
     Indication: HYPERSENSITIVITY
  9. CYCLAFEM [Concomitant]
     Indication: CONTRACEPTION
     Dosage: 1 DAILY
  10. SAVELLA [Concomitant]
     Indication: FIBROMYALGIA
  11. FOLIC ACID [Concomitant]
     Indication: PRODUCT USED FOR UNKNOWN INDICATION
  12. TYLENOL [Concomitant]
     Indication: PRODUCT USED FOR UNKNOWN INDICATION

REACTIONS (7)
  - White blood cell count increased [Recovered/Resolved]
  - Injection site pain [Not Recovered/Not Resolved]
  - Crying [Not Recovered/Not Resolved]
  - Injection site vesicles [Not Recovered/Not Resolved]
  - Blood cholesterol increased [Not Recovered/Not Resolved]
  - Abdominal pain upper [Unknown]
  - Heart rate increased [Unknown]
